FAERS Safety Report 6685464-5 (Version None)
Quarter: 2010Q2

REPORT INFORMATION
  Report Type: 
  Country: None (occurrence: None)
  Receive Date: 20100419
  Receipt Date: 20100407
  Transmission Date: 20101027
  Serious: Yes (Hospitalization, Other)
  Sender: FDA-Public Use
  Company Number: US-BIOGENIDEC-2009BI029328

PATIENT
  Age: 70 Year
  Sex: Female

DRUGS (1)
  1. AVONEX [Suspect]
     Indication: MULTIPLE SCLEROSIS
     Route: 030
     Dates: start: 20041105, end: 20100326

REACTIONS (6)
  - ABASIA [None]
  - CEREBROVASCULAR ACCIDENT [None]
  - EYELID FUNCTION DISORDER [None]
  - MALIGNANT MELANOMA [None]
  - MALIGNANT MELANOMA OF SITES OTHER THAN SKIN [None]
  - RADIATION INJURY [None]
